FAERS Safety Report 7207552-7 (Version None)
Quarter: 2011Q1

REPORT INFORMATION
  Report Type: 
  Country: None (occurrence: None)
  Receive Date: 20110103
  Receipt Date: 20101110
  Transmission Date: 20110831
  Serious: Yes (Other)
  Sender: FDA-Public Use
  Company Number: AU-PFIZER INC-2010145282

PATIENT
  Age: 51 Year
  Sex: Male

DRUGS (4)
  1. ZANIDIP [Concomitant]
     Dosage: UNK
  2. DEPO-MEDROL [Suspect]
     Indication: SEASONAL ALLERGY
     Dosage: 40 MG, UNK
     Route: 030
  3. KARVEZIDE [Concomitant]
     Dosage: UNK
  4. ZANTAC [Concomitant]
     Dosage: UNK

REACTIONS (4)
  - ABASIA [None]
  - TENDONITIS [None]
  - INCORRECT ROUTE OF DRUG ADMINISTRATION [None]
  - GOUT [None]
